FAERS Safety Report 12924997 (Version 1)
Quarter: 2016Q4

REPORT INFORMATION
  Report Type: Spontaneous
  Country: US (occurrence: US)
  Receive Date: 20161108
  Receipt Date: 20161108
  Transmission Date: 20170207
  Serious: Yes (Other)
  Sender: FDA-Public Use
  Company Number: US-TEVA-710533USA

PATIENT
  Age: 68 Year
  Sex: Female
  Weight: 95.34 kg

DRUGS (1)
  1. VENLAFAXINE [Suspect]
     Active Substance: VENLAFAXINE HYDROCHLORIDE
     Route: 065
     Dates: start: 201602

REACTIONS (5)
  - Dysarthria [Recovering/Resolving]
  - Dysphagia [Recovering/Resolving]
  - Swollen tongue [Recovering/Resolving]
  - Mastication disorder [Unknown]
  - Slow speech [Recovering/Resolving]

NARRATIVE: CASE EVENT DATE: 201602
